FAERS Safety Report 4488089-5 (Version None)
Quarter: 2004Q4

REPORT INFORMATION
  Report Type: 
  Country: None (occurrence: None)
  Receive Date: 20041028
  Receipt Date: 20041018
  Transmission Date: 20050328
  Serious: Yes (Other)
  Sender: FDA-Public Use
  Company Number: RU-GLAXOSMITHKLINE-B0349223A

PATIENT
  Age: 53 Year
  Sex: Female
  Weight: 62 kg

DRUGS (5)
  1. FLIXOTIDE [Suspect]
     Dosage: 500U TWICE PER DAY
     Route: 055
  2. METHYLPREDNISOLONE [Concomitant]
     Dosage: 3MG PER DAY
     Route: 048
     Dates: start: 19960101
  3. DYDROGESTERONE TAB [Concomitant]
     Indication: METRORRHAGIA
     Dosage: 10MG PER DAY
     Route: 048
     Dates: start: 20041008
  4. CALCIUM D3 [Concomitant]
     Indication: OSTEOPOROSIS
     Dosage: 2TAB PER DAY
     Route: 048
     Dates: start: 19960101
  5. CAPTOPRIL [Concomitant]
     Indication: HYPERTENSION
     Dosage: 25MG AT NIGHT
     Route: 048
     Dates: start: 19960101

REACTIONS (1)
  - MENORRHAGIA [None]
